FAERS Safety Report 20461583 (Version 3)
Quarter: 2022Q2

REPORT INFORMATION
  Report Type: Report from Study
  Country: FR (occurrence: None)
  Receive Date: 20220211
  Receipt Date: 20220425
  Transmission Date: 20220721
  Serious: Yes (Death, Hospitalization)
  Sender: FDA-Public Use
  Company Number: FR-ROCHE-3022596

PATIENT
  Age: 70 Year
  Sex: Male
  Weight: 78 kg

DRUGS (7)
  1. OBINUTUZUMAB [Suspect]
     Active Substance: OBINUTUZUMAB
     Indication: Chronic lymphocytic leukaemia
     Dosage: AS PER PROTOCOL.?THE DOSE OF LAST STUDY DRUG ADMINISTERED PRIOR TO AE  (ADVERSE EVENT) ONSET: 200 MG
     Route: 042
     Dates: start: 20210426
  2. VENETOCLAX [Suspect]
     Active Substance: VENETOCLAX
     Indication: Chronic lymphocytic leukaemia
     Dosage: THE START DATE OF MOST RECENT DOSE OF VENETOCLAX (2022 MG) PRIOR TO AE (ADVERSE EVENT) ONSET: 03/FEB
     Route: 048
     Dates: start: 20210520
  3. KENZEN (FRANCE) [Concomitant]
     Indication: Hypertension
     Route: 048
  4. FENOFIBRATE [Concomitant]
     Active Substance: FENOFIBRATE
     Indication: Hypercholesterolaemia
     Route: 048
  5. VALACYCLOVIR HYDROCHLORIDE [Concomitant]
     Active Substance: VALACYCLOVIR HYDROCHLORIDE
     Indication: Infection prophylaxis
     Route: 048
     Dates: start: 20210428
  6. ALPRAZOLAM [Concomitant]
     Active Substance: ALPRAZOLAM
     Indication: Anxiety
     Route: 048
     Dates: start: 20210526
  7. COVID-19 VACCINE [Concomitant]
     Dosage: SECOND DOSE: 02/JUN/2021
     Dates: start: 20210306

REACTIONS (1)
  - Pneumonia [Fatal]

NARRATIVE: CASE EVENT DATE: 20220203
